FAERS Safety Report 6607552-1 (Version None)
Quarter: 2010Q1

REPORT INFORMATION
  Report Type: 
  Country: None (occurrence: None)
  Receive Date: 20100301
  Receipt Date: 20100218
  Transmission Date: 20100710
  Serious: Yes (Other)
  Sender: FDA-Public Use
  Company Number: PHHY2009JP58460

PATIENT
  Age: 38 Year
  Sex: Male

DRUGS (3)
  1. VOLTAREN [Suspect]
     Dosage: 50 MG
     Route: 054
     Dates: start: 20060701, end: 20060701
  2. LORCAM [Suspect]
     Dosage: UNK
     Route: 048
  3. LOXONIN [Suspect]
     Dosage: UNK
     Route: 048

REACTIONS (2)
  - RENAL FAILURE CHRONIC [None]
  - TUBULOINTERSTITIAL NEPHRITIS [None]
